FAERS Safety Report 17686960 (Version 3)
Quarter: 2020Q4

REPORT INFORMATION
  Report Type: Spontaneous
  Country: JP (occurrence: JP)
  Receive Date: 20200421
  Receipt Date: 20201005
  Transmission Date: 20210113
  Serious: Yes (Other)
  Sender: FDA-Public Use
  Company Number: JP-ABBVIE-20K-087-3370754-00

PATIENT
  Age: 52 Year
  Sex: Female
  Weight: 64.4 kg

DRUGS (2)
  1. KALETRA [Suspect]
     Active Substance: LOPINAVIR\RITONAVIR
     Indication: COVID-19 PNEUMONIA
     Dosage: 800/200 MG
     Route: 048
  2. CICLESONIDE [Concomitant]
     Active Substance: CICLESONIDE
     Indication: COVID-19 PNEUMONIA
     Route: 055

REACTIONS (4)
  - Respiratory failure [Unknown]
  - Off label use [Unknown]
  - Mechanical ventilation [Unknown]
  - Endotracheal intubation [Unknown]
